FAERS Safety Report 9571137 (Version 2)
Quarter: 2013Q4

REPORT INFORMATION
  Report Type: Spontaneous
  Country: US (occurrence: None)
  Receive Date: 20130927
  Receipt Date: 20131028
  Transmission Date: 20140711
  Serious: Yes (Other)
  Sender: FDA-Public Use
  Company Number: ACO_36713_2013

PATIENT
  Sex: Female

DRUGS (12)
  1. AMPYRA (DALFAMPRIDINE) TABLET, 10MG [Suspect]
     Indication: MULTIPLE SCLEROSIS
     Dates: start: 20121004, end: 20130604
  2. BACLOFEN [Concomitant]
  3. VIACTIV CALCIUM PLUS VITAMIN D + K(CALCIM CARBONATE COLECALFIEROL, PHYTOMENADIONE) [Concomitant]
  4. VITAMIN D3 [Concomitant]
  5. DIMETHYL FUMARATE [Concomitant]
  6. LEXAPRO [Concomitant]
  7. NEURONTIN [Concomitant]
  8. XALATAN [Concomitant]
  9. LISINOPRIL [Concomitant]
  10. MULTIVITAMIN [Concomitant]
  11. OMEGA-3 FATTY ACIDS [Concomitant]
  12. PRAVACHOL [Concomitant]

REACTIONS (3)
  - Complex partial seizures [None]
  - Drug interaction [None]
  - Multiple sclerosis relapse [None]
